FAERS Safety Report 7548109-8 (Version None)
Quarter: 2011Q2

REPORT INFORMATION
  Report Type: 
  Country: None (occurrence: None)
  Receive Date: 20110615
  Receipt Date: 20110601
  Transmission Date: 20111010
  Serious: Yes (Other)
  Sender: FDA-Public Use
  Company Number: GB-RANBAXY-2011R1-45079

PATIENT
  Age: 55 Year
  Sex: Female

DRUGS (1)
  1. AMPICILLIN SODIUM/SULBACTAM SODIUM [Suspect]
     Indication: URINARY TRACT INFECTION
     Dosage: 1.2 G, UNK
     Route: 042
     Dates: start: 20110518, end: 20110518

REACTIONS (7)
  - HYPOTENSION [None]
  - HYPERHIDROSIS [None]
  - OXYGEN SATURATION DECREASED [None]
  - PYREXIA [None]
  - TACHYPNOEA [None]
  - DRUG HYPERSENSITIVITY [None]
  - TACHYCARDIA [None]
